FAERS Safety Report 14609968 (Version 1)
Quarter: 2018Q1

REPORT INFORMATION
  Report Type: Spontaneous
  Country: US (occurrence: US)
  Receive Date: 20180307
  Receipt Date: 20180307
  Transmission Date: 20180509
  Serious: Yes (Hospitalization, Disabling)
  Sender: FDA-Public Use
  Company Number: None

PATIENT
  Age: 71 Year
  Sex: Female
  Weight: 68.4 kg

DRUGS (1)
  1. ZOMETA [Suspect]
     Active Substance: ZOLEDRONIC ACID
     Indication: OSTEOPENIA
     Route: 042
     Dates: start: 20180301

REACTIONS (9)
  - Migraine [None]
  - Gait inability [None]
  - Musculoskeletal disorder [None]
  - Arthralgia [None]
  - Joint swelling [None]
  - Influenza like illness [None]
  - Pain [None]
  - Pyrexia [None]
  - Neck pain [None]

NARRATIVE: CASE EVENT DATE: 20180302
